FAERS Safety Report 20454400 (Version 4)
Quarter: 2022Q3

REPORT INFORMATION
  Report Type: Spontaneous
  Country: US (occurrence: US)
  Receive Date: 20220210
  Receipt Date: 20220701
  Transmission Date: 20221027
  Serious: No
  Sender: FDA-Public Use
  Company Number: US-LUPIN PHARMACEUTICALS INC.-2022-01572

PATIENT
  Sex: Female

DRUGS (1)
  1. ALBUTEROL SULFATE [Suspect]
     Active Substance: ALBUTEROL SULFATE
     Indication: Asthma
     Dosage: UNK, PRN 2 PUFFS BY MOUTH EVERY 4 TO 6 HOURS AS NEEDED

REACTIONS (3)
  - Device delivery system issue [Unknown]
  - Wrong technique in device usage process [Unknown]
  - Drug ineffective [Unknown]
